FAERS Safety Report 18666865 (Version 1)
Quarter: 2020Q4

REPORT INFORMATION
  Report Type: Spontaneous
  Country: US (occurrence: US)
  Receive Date: 20201228
  Receipt Date: 20201228
  Transmission Date: 20210114
  Serious: No
  Sender: FDA-Public Use
  Company Number: US-CADILA HEALTHCARE LIMITED-US-ZYDUS-058115

PATIENT

DRUGS (1)
  1. LANSOPRAZOLE 15 MILLIGRAM TABLET, DELAYED RELEASE [Suspect]
     Active Substance: LANSOPRAZOLE
     Indication: PRODUCT USED FOR UNKNOWN INDICATION
     Dosage: UNK
     Route: 048
     Dates: start: 2020

REACTIONS (3)
  - Product solubility abnormal [Unknown]
  - Recalled product administered [Unknown]
  - Product administration error [Unknown]

NARRATIVE: CASE EVENT DATE: 2020
